FAERS Safety Report 12770980 (Version 1)
Quarter: 2016Q3

REPORT INFORMATION
  Report Type: Spontaneous
  Country: US (occurrence: US)
  Receive Date: 20160922
  Receipt Date: 20160922
  Transmission Date: 20161109
  Serious: Yes (Other)
  Sender: FDA-Public Use
  Company Number: US-PFIZER INC-2016441553

PATIENT
  Age: 51 Year
  Sex: Female

DRUGS (13)
  1. TYVASO [Suspect]
     Active Substance: TREPROSTINIL
     Indication: PULMONARY ARTERIAL HYPERTENSION
     Dosage: 54 UG, 4X/DAY, (9 BREATHS)
     Route: 055
     Dates: start: 20160418
  2. LEVOFLOXACIN. [Concomitant]
     Active Substance: LEVOFLOXACIN
  3. CLOPIDOGREL [Concomitant]
     Active Substance: CLOPIDOGREL BISULFATE
  4. FOLIC ACID. [Concomitant]
     Active Substance: FOLIC ACID
  5. FUROSEMIDE. [Concomitant]
     Active Substance: FUROSEMIDE
  6. ATIVAN [Concomitant]
     Active Substance: LORAZEPAM
  7. AMBRISENTAN [Suspect]
     Active Substance: AMBRISENTAN
     Indication: PULMONARY HYPERTENSION
     Dosage: 5 MG, 1X/DAY
     Dates: start: 20160204
  8. LIPITOR [Concomitant]
     Active Substance: ATORVASTATIN CALCIUM
  9. VITAMIN D /00107901/ [Concomitant]
     Active Substance: ERGOCALCIFEROL
  10. WARFARIN [Concomitant]
     Active Substance: WARFARIN
  11. SILDENAFIL CITRATE. [Suspect]
     Active Substance: SILDENAFIL CITRATE
     Dosage: UNK
  12. GABAPENTIN. [Concomitant]
     Active Substance: GABAPENTIN
  13. OXYCODONE [Concomitant]
     Active Substance: OXYCODONE

REACTIONS (6)
  - Aphonia [Unknown]
  - Weight increased [Unknown]
  - Oropharyngeal pain [Unknown]
  - Dyspnoea [Unknown]
  - Condition aggravated [Unknown]
  - Fluid retention [Unknown]

NARRATIVE: CASE EVENT DATE: 20160823
